FAERS Safety Report 5108780-7 (Version None)
Quarter: 2006Q3

REPORT INFORMATION
  Report Type: 
  Country: None (occurrence: None)
  Receive Date: 20060920
  Receipt Date: 20060913
  Transmission Date: 20061208
  Serious: Yes (Hospitalization)
  Sender: FDA-Public Use
  Company Number: US-BRISTOL-MYERS SQUIBB COMPANY-13509419

PATIENT
  Age: 71 Year
  Sex: Female

DRUGS (3)
  1. ERBITUX [Suspect]
     Route: 042
     Dates: start: 20050817
  2. TAXOL [Suspect]
     Route: 042
     Dates: start: 20060817
  3. CARBOPLATIN [Suspect]
     Route: 042
     Dates: start: 20060817

REACTIONS (3)
  - DEHYDRATION [None]
  - HYPOTENSION [None]
  - NEUTROPENIA [None]
